FAERS Safety Report 6124233-1 (Version None)
Quarter: 2009Q1

REPORT INFORMATION
  Report Type: 
  Country: None (occurrence: None)
  Receive Date: 20090319
  Receipt Date: 20090310
  Transmission Date: 20090719
  Serious: Yes (Hospitalization, Other)
  Sender: FDA-Public Use
  Company Number: US-ABBOTT-09P-163-0561731-00

PATIENT
  Sex: Male
  Weight: 90.8 kg

DRUGS (2)
  1. HUMIRA [Suspect]
     Indication: RHEUMATOID ARTHRITIS
     Route: 058
     Dates: start: 20050101
  2. UNKNOWN MEDICATIONS [Concomitant]
     Indication: DRUG USE FOR UNKNOWN INDICATION

REACTIONS (3)
  - ARTHRALGIA [None]
  - CORONARY ARTERY OCCLUSION [None]
  - PAIN IN EXTREMITY [None]
